FAERS Safety Report 19103702 (Version 2)
Quarter: 2024Q4

REPORT INFORMATION
  Report Type: Spontaneous
  Country: FR (occurrence: FR)
  Receive Date: 20210407
  Receipt Date: 20241023
  Transmission Date: 20250114
  Serious: Yes (Hospitalization, Other)
  Sender: PFIZER
  Company Number: FR-GSKCCFEMEA-CASE-01122188_AE-39114

PATIENT
  Age: 46 Year
  Sex: Male

DRUGS (11)
  1. CLINDAMYCIN [Suspect]
     Active Substance: CLINDAMYCIN
     Dosage: 2 DF, 3X/DAY (300)
     Dates: start: 20201207, end: 20201217
  2. TRAMADOL HYDROCHLORIDE [Suspect]
     Active Substance: TRAMADOL HYDROCHLORIDE
     Dosage: 200 MG, 1X/DAY
     Dates: start: 20201001
  3. PRIVIGEN [Suspect]
     Active Substance: HUMAN IMMUNOGLOBULIN G
     Dosage: 20 G, EVERY 3 WEEKS
  4. ACETAMINOPHEN [Suspect]
     Active Substance: ACETAMINOPHEN
     Dosage: 500 MG, IF NEED
     Dates: start: 20201001
  5. OXAZEPAM [Suspect]
     Active Substance: OXAZEPAM
     Dosage: 10 MG, QD
     Dates: start: 20200110
  6. BACTRIM [Suspect]
     Active Substance: SULFAMETHOXAZOLE\TRIMETHOPRIM
     Dosage: 1/2 TABLET , QD
     Dates: start: 20201001
  7. CEFTRIAXONE [Suspect]
     Active Substance: CEFTRIAXONE
     Dosage: 1 G
     Dates: start: 20201001, end: 20201009
  8. VITAMIN K1 [Suspect]
     Active Substance: PHYTONADIONE
     Dosage: 10 MG, WE, 10 MG FOR 1 ML 1X/WEEK ON THURSDAY
     Dates: start: 20201001
  9. PAROXETINE HYDROCHLORIDE [Suspect]
     Active Substance: PAROXETINE HYDROCHLORIDE
     Dosage: 1 DF, QD
     Dates: start: 20201001, end: 20201127
  10. TRAMADOL HYDROCHLORIDE [Suspect]
     Active Substance: TRAMADOL HYDROCHLORIDE
     Dosage: 1 DF, 2X/DAY (200MG)
     Dates: start: 20201001
  11. VANCOMYCIN [Suspect]
     Active Substance: VANCOMYCIN
     Indication: Bacteraemia
     Dosage: UNK
     Route: 042
     Dates: start: 202010

REACTIONS (4)
  - Staphylococcal infection [Unknown]
  - Hyper IgE syndrome [Unknown]
  - Gynaecomastia [Unknown]
  - Infection [Unknown]

NARRATIVE: CASE EVENT DATE: 20200101
